FAERS Safety Report 18673838 (Version 1)
Quarter: 2020Q4

REPORT INFORMATION
  Report Type: Report from Study
  Country: JP (occurrence: JP)
  Receive Date: 20201229
  Receipt Date: 20201229
  Transmission Date: 20210114
  Serious: Yes (Other)
  Sender: FDA-Public Use
  Company Number: JP-SHIRE-JP201908688AA

PATIENT

DRUGS (26)
  1. PEGYLATED COAGULATION FACTOR VIII [Suspect]
     Active Substance: ANTIHEMOPHILIC FACTOR, PEGYLATED (MW 20000) HUMAN SEQUENCE RECOMBINANT
     Dosage: 3000 INTERNATIONAL UNIT, SINGLE
     Route: 065
     Dates: start: 20170603, end: 20170603
  2. PEGYLATED COAGULATION FACTOR VIII [Suspect]
     Active Substance: ANTIHEMOPHILIC FACTOR, PEGYLATED (MW 20000) HUMAN SEQUENCE RECOMBINANT
     Dosage: 3000 INTERNATIONAL UNIT, SINGLE
     Route: 065
     Dates: start: 20170823, end: 20170823
  3. PEGYLATED COAGULATION FACTOR VIII [Suspect]
     Active Substance: ANTIHEMOPHILIC FACTOR, PEGYLATED (MW 20000) HUMAN SEQUENCE RECOMBINANT
     Indication: HAEMORRHAGE
     Dosage: 3000 INTERNATIONAL UNIT, 1X/WEEK (47 TIMES)
     Route: 065
     Dates: start: 20170315, end: 20180207
  4. PEGYLATED COAGULATION FACTOR VIII [Suspect]
     Active Substance: ANTIHEMOPHILIC FACTOR, PEGYLATED (MW 20000) HUMAN SEQUENCE RECOMBINANT
     Indication: HAEMORRHAGE
     Dosage: 3000 INTERNATIONAL UNIT, 1X/WEEK (47 TIMES)
     Route: 065
     Dates: start: 20170315, end: 20180207
  5. PEGYLATED COAGULATION FACTOR VIII [Suspect]
     Active Substance: ANTIHEMOPHILIC FACTOR, PEGYLATED (MW 20000) HUMAN SEQUENCE RECOMBINANT
     Dosage: 3000 INTERNATIONAL UNIT, SINGLE
     Route: 065
     Dates: start: 20170603, end: 20170603
  6. PEGYLATED COAGULATION FACTOR VIII [Suspect]
     Active Substance: ANTIHEMOPHILIC FACTOR, PEGYLATED (MW 20000) HUMAN SEQUENCE RECOMBINANT
     Indication: HAEMORRHAGE
     Dosage: 3000 INTERNATIONAL UNIT, 1X/WEEK (47 TIMES)
     Route: 065
     Dates: start: 20170315, end: 20180207
  7. PEGYLATED COAGULATION FACTOR VIII [Suspect]
     Active Substance: ANTIHEMOPHILIC FACTOR, PEGYLATED (MW 20000) HUMAN SEQUENCE RECOMBINANT
     Dosage: 3000 INTERNATIONAL UNIT, SINGLE
     Route: 065
     Dates: start: 20170603, end: 20170603
  8. PEGYLATED COAGULATION FACTOR VIII [Suspect]
     Active Substance: ANTIHEMOPHILIC FACTOR, PEGYLATED (MW 20000) HUMAN SEQUENCE RECOMBINANT
     Dosage: 3000 INTERNATIONAL UNIT, SINGLE
     Route: 065
     Dates: start: 20171022, end: 20171022
  9. PEGYLATED COAGULATION FACTOR VIII [Suspect]
     Active Substance: ANTIHEMOPHILIC FACTOR, PEGYLATED (MW 20000) HUMAN SEQUENCE RECOMBINANT
     Dosage: 3000 INTERNATIONAL UNIT, SINGLE
     Route: 065
     Dates: start: 20170823, end: 20170823
  10. PEGYLATED COAGULATION FACTOR VIII [Suspect]
     Active Substance: ANTIHEMOPHILIC FACTOR, PEGYLATED (MW 20000) HUMAN SEQUENCE RECOMBINANT
     Dosage: 3000 INTERNATIONAL UNIT, SINGLE
     Route: 065
     Dates: start: 20171022, end: 20171022
  11. PEGYLATED COAGULATION FACTOR VIII [Suspect]
     Active Substance: ANTIHEMOPHILIC FACTOR, PEGYLATED (MW 20000) HUMAN SEQUENCE RECOMBINANT
     Dosage: 3000 INTERNATIONAL UNIT, SINGLE
     Route: 065
     Dates: start: 20171022, end: 20171022
  12. PEGYLATED COAGULATION FACTOR VIII [Suspect]
     Active Substance: ANTIHEMOPHILIC FACTOR, PEGYLATED (MW 20000) HUMAN SEQUENCE RECOMBINANT
     Indication: PROPHYLAXIS
     Dosage: 2000 INTERNATIONAL UNIT, 1X/WEEK (5 TIMES)
     Route: 065
     Dates: start: 20170215, end: 20170314
  13. PEGYLATED COAGULATION FACTOR VIII [Suspect]
     Active Substance: ANTIHEMOPHILIC FACTOR, PEGYLATED (MW 20000) HUMAN SEQUENCE RECOMBINANT
     Dosage: 3000 INTERNATIONAL UNIT, SINGLE
     Route: 065
     Dates: start: 20170917, end: 20170917
  14. PEGYLATED COAGULATION FACTOR VIII [Suspect]
     Active Substance: ANTIHEMOPHILIC FACTOR, PEGYLATED (MW 20000) HUMAN SEQUENCE RECOMBINANT
     Dosage: 3000 INTERNATIONAL UNIT, SINGLE
     Route: 065
     Dates: start: 20180206, end: 20180206
  15. LOXONIN [Concomitant]
     Active Substance: LOXOPROFEN SODIUM
     Dosage: 60 MILLIGRAM, TID
     Route: 065
  16. PEGYLATED COAGULATION FACTOR VIII [Suspect]
     Active Substance: ANTIHEMOPHILIC FACTOR, PEGYLATED (MW 20000) HUMAN SEQUENCE RECOMBINANT
     Dosage: 3000 INTERNATIONAL UNIT, SINGLE
     Route: 065
     Dates: start: 20170814, end: 20170814
  17. LOXONIN [Concomitant]
     Active Substance: LOXOPROFEN SODIUM
     Dosage: 300 MILLIGRAM, QD
  18. PEGYLATED COAGULATION FACTOR VIII [Suspect]
     Active Substance: ANTIHEMOPHILIC FACTOR, PEGYLATED (MW 20000) HUMAN SEQUENCE RECOMBINANT
     Indication: PROPHYLAXIS
     Dosage: 2000 INTERNATIONAL UNIT, 1X/WEEK (5 TIMES)
     Route: 065
     Dates: start: 20170215, end: 20170314
  19. PEGYLATED COAGULATION FACTOR VIII [Suspect]
     Active Substance: ANTIHEMOPHILIC FACTOR, PEGYLATED (MW 20000) HUMAN SEQUENCE RECOMBINANT
     Indication: PROPHYLAXIS
     Dosage: 2000 INTERNATIONAL UNIT, 1X/WEEK (5 TIMES)
     Route: 065
     Dates: start: 20170215, end: 20170314
  20. PEGYLATED COAGULATION FACTOR VIII [Suspect]
     Active Substance: ANTIHEMOPHILIC FACTOR, PEGYLATED (MW 20000) HUMAN SEQUENCE RECOMBINANT
     Dosage: 3000 INTERNATIONAL UNIT, SINGLE
     Route: 065
     Dates: start: 20170814, end: 20170814
  21. PEGYLATED COAGULATION FACTOR VIII [Suspect]
     Active Substance: ANTIHEMOPHILIC FACTOR, PEGYLATED (MW 20000) HUMAN SEQUENCE RECOMBINANT
     Dosage: 3000 INTERNATIONAL UNIT, SINGLE
     Route: 065
     Dates: start: 20170814, end: 20170814
  22. PEGYLATED COAGULATION FACTOR VIII [Suspect]
     Active Substance: ANTIHEMOPHILIC FACTOR, PEGYLATED (MW 20000) HUMAN SEQUENCE RECOMBINANT
     Dosage: 3000 INTERNATIONAL UNIT, SINGLE
     Route: 065
     Dates: start: 20170823, end: 20170823
  23. PEGYLATED COAGULATION FACTOR VIII [Suspect]
     Active Substance: ANTIHEMOPHILIC FACTOR, PEGYLATED (MW 20000) HUMAN SEQUENCE RECOMBINANT
     Dosage: 3000 INTERNATIONAL UNIT, SINGLE
     Route: 065
     Dates: start: 20170917, end: 20170917
  24. PEGYLATED COAGULATION FACTOR VIII [Suspect]
     Active Substance: ANTIHEMOPHILIC FACTOR, PEGYLATED (MW 20000) HUMAN SEQUENCE RECOMBINANT
     Dosage: 3000 INTERNATIONAL UNIT, SINGLE
     Route: 065
     Dates: start: 20170917, end: 20170917
  25. PEGYLATED COAGULATION FACTOR VIII [Suspect]
     Active Substance: ANTIHEMOPHILIC FACTOR, PEGYLATED (MW 20000) HUMAN SEQUENCE RECOMBINANT
     Dosage: 3000 INTERNATIONAL UNIT, SINGLE
     Route: 065
     Dates: start: 20180206, end: 20180206
  26. PEGYLATED COAGULATION FACTOR VIII [Suspect]
     Active Substance: ANTIHEMOPHILIC FACTOR, PEGYLATED (MW 20000) HUMAN SEQUENCE RECOMBINANT
     Dosage: 3000 INTERNATIONAL UNIT, SINGLE
     Route: 065
     Dates: start: 20180206, end: 20180206

REACTIONS (2)
  - Factor VIII inhibition [Recovered/Resolved]
  - Haemarthrosis [Unknown]

NARRATIVE: CASE EVENT DATE: 20170315
